FAERS Safety Report 24298722 (Version 1)
Quarter: 2024Q3

REPORT INFORMATION
  Report Type: Spontaneous
  Country: US (occurrence: None)
  Receive Date: 20240908
  Receipt Date: 20240908
  Transmission Date: 20241016
  Serious: Yes (Hospitalization)
  Sender: Public
  Company Number: None

PATIENT
  Sex: Female

DRUGS (10)
  1. TEZSPIRE [Suspect]
     Active Substance: TEZEPELUMAB-EKKO
     Indication: Asthma
     Route: 058
     Dates: start: 20230823
  2. ADVAIR DISKUS [Concomitant]
     Active Substance: FLUTICASONE PROPIONATE\SALMETEROL XINAFOATE
  3. ALBUTEROL AER HFA [Concomitant]
  4. ATORVASTATIN [Concomitant]
     Active Substance: ATORVASTATIN
  5. CITALOPRAM [Concomitant]
     Active Substance: CITALOPRAM\CITALOPRAM HYDROBROMIDE
  6. ESTRADIOL [Concomitant]
     Active Substance: ESTRADIOL
  7. LOSARTAN POT TAB [Concomitant]
  8. NIFEDIPINE [Concomitant]
     Active Substance: NIFEDIPINE
  9. PROTONIX [Concomitant]
     Active Substance: PANTOPRAZOLE SODIUM
  10. SINGULAIR [Concomitant]

REACTIONS (3)
  - Asthma [None]
  - Quality of life decreased [None]
  - Drug ineffective [None]
